FAERS Safety Report 13797761 (Version 1)
Quarter: 2017Q3

REPORT INFORMATION
  Report Type: Spontaneous
  Country: MX (occurrence: MX)
  Receive Date: 20170727
  Receipt Date: 20170727
  Transmission Date: 20171127
  Serious: Yes (Hospitalization, Other)
  Sender: FDA-Public Use
  Company Number: MX-ALEMBIC PHARMACUETICALS LIMITED-2017SCAL000630

PATIENT

DRUGS (9)
  1. QUETIAPINE FUMARATE. [Interacting]
     Active Substance: QUETIAPINE FUMARATE
     Indication: DEPRESSION
     Dosage: 300 MG, QD
     Route: 065
  2. LEVETIRACETAM. [Interacting]
     Active Substance: LEVETIRACETAM
     Indication: DEPRESSION
     Dosage: 500 MG, BID
     Route: 065
  3. RALOXIFENE. [Concomitant]
     Active Substance: RALOXIFENE
     Indication: DEPRESSION
     Dosage: 60 MG, UNK
     Route: 065
  4. ATORVASTATIN [Concomitant]
     Active Substance: ATORVASTATIN
     Indication: DYSLIPIDAEMIA
     Dosage: 10 MG, QD
     Route: 065
  5. PIRACETAM [Concomitant]
     Active Substance: PIRACETAM
     Indication: DEPRESSION
     Dosage: UNK
     Route: 065
  6. KETOCONAZOLE. [Suspect]
     Active Substance: KETOCONAZOLE
     Indication: HAEMODYNAMIC INSTABILITY
     Dosage: UNK
     Route: 065
  7. NIFEDIPINE. [Interacting]
     Active Substance: NIFEDIPINE
     Indication: HYPERTENSION
     Dosage: 20 MG, QD
     Route: 065
  8. MEROPENEM                          /01250502/ [Suspect]
     Active Substance: MEROPENEM
     Indication: HAEMODYNAMIC INSTABILITY
     Dosage: UNK
     Route: 065
  9. DESVENLAFAXINE. [Suspect]
     Active Substance: DESVENLAFAXINE
     Indication: DEPRESSION
     Dosage: 50 MG, UNK
     Route: 065

REACTIONS (3)
  - Large intestine perforation [Recovered/Resolved]
  - Drug interaction [Recovered/Resolved]
  - Intestinal pseudo-obstruction [Recovered/Resolved]
